FAERS Safety Report 4518762-1 (Version None)
Quarter: 2004Q4

REPORT INFORMATION
  Report Type: 
  Country: None (occurrence: None)
  Receive Date: 20041104
  Receipt Date: 20040720
  Transmission Date: 20050328
  Serious: Yes (Other)
  Sender: FDA-Public Use
  Company Number: PHEH2004US07809

PATIENT
  Sex: Female

DRUGS (5)
  1. ESTROGENS (ESTROGENS) [Suspect]
     Indication: HORMONE REPLACEMENT THERAPY
  2. MPA (MEDROXYPROGESTERONE ACETATE) [Suspect]
  3. PREMPRO [Suspect]
  4. PREMARIN [Suspect]
  5. PROVERA [Suspect]

REACTIONS (3)
  - BREAST CANCER FEMALE [None]
  - INJURY [None]
  - SURGERY [None]
